FAERS Safety Report 9455646 (Version 2)
Quarter: 2013Q3

REPORT INFORMATION
  Report Type: Spontaneous
  Country: US (occurrence: US)
  Receive Date: 20130813
  Receipt Date: 20130826
  Transmission Date: 20140515
  Serious: Yes (Death, Hospitalization, Other)
  Sender: FDA-Public Use
  Company Number: US-ASTELLAS-2013US008327

PATIENT
  Age: 68 Year
  Sex: Female

DRUGS (6)
  1. TARCEVA [Suspect]
     Indication: PANCREATIC CARCINOMA METASTATIC
     Dosage: 100 MG, UNKNOWN/D
     Route: 065
     Dates: end: 20130701
  2. XELODA [Suspect]
     Indication: PANCREATIC CARCINOMA METASTATIC
     Dosage: UNK
     Route: 065
     Dates: start: 201209, end: 201212
  3. GEMCITABINE [Concomitant]
     Indication: PANCREATIC CARCINOMA
     Dosage: 1464 MG, CYCLIC ON DAYS 1,8 + 15 OF A 28 DAY CYCLE
     Route: 017
     Dates: start: 20130121
  4. OXALIPLATIN [Concomitant]
     Indication: PRODUCT USED FOR UNKNOWN INDICATION
     Dosage: UNK
     Route: 065
     Dates: start: 201209, end: 201212
  5. INSULIN GLARGINE [Concomitant]
     Indication: PRODUCT USED FOR UNKNOWN INDICATION
     Dosage: UNK UG, UID/QD
     Route: 065
  6. LEVOTHYROXINE [Concomitant]
     Indication: PRODUCT USED FOR UNKNOWN INDICATION
     Dosage: 100 UG, UID/QD
     Route: 065

REACTIONS (10)
  - Small intestinal obstruction [Unknown]
  - Peritonitis bacterial [Unknown]
  - Leukocytosis [Unknown]
  - Sepsis syndrome [Unknown]
  - Malignant neoplasm progression [Unknown]
  - Pleural effusion [Unknown]
  - Adrenal mass [Unknown]
  - Infection [Unknown]
  - Mucosal inflammation [Unknown]
  - Pancreatic carcinoma metastatic [Fatal]
